FAERS Safety Report 17653944 (Version 3)
Quarter: 2020Q2

REPORT INFORMATION
  Report Type: Report from Study
  Country: US (occurrence: US)
  Receive Date: 20200410
  Receipt Date: 20200505
  Transmission Date: 20200713
  Serious: Yes (Other)
  Sender: FDA-Public Use
  Company Number: NVSC2020US092856

PATIENT
  Age: 54 Year
  Sex: Female

DRUGS (1)
  1. ENTRESTO [Suspect]
     Active Substance: SACUBITRIL\VALSARTAN
     Indication: PRODUCT USED FOR UNKNOWN INDICATION
     Dosage: 50 MG, BID (24/26 MG)
     Route: 048
     Dates: start: 20200124

REACTIONS (6)
  - Product dose omission [Recovered/Resolved]
  - Pain in extremity [Not Recovered/Not Resolved]
  - Gait inability [Unknown]
  - Cardiac failure [Unknown]
  - Feeling abnormal [Recovered/Resolved]
  - Fatigue [Unknown]

NARRATIVE: CASE EVENT DATE: 20200124
